FAERS Safety Report 23378449 (Version 1)
Quarter: 2024Q1

REPORT INFORMATION
  Report Type: Spontaneous
  Country: US (occurrence: US)
  Receive Date: 20240108
  Receipt Date: 20240108
  Transmission Date: 20240410
  Serious: Yes (Death)
  Sender: FDA-Public Use
  Company Number: US-BAYER-2024A001731

PATIENT
  Age: 6 Year
  Sex: Male

DRUGS (4)
  1. LORATADINE [Suspect]
     Active Substance: LORATADINE
     Dosage: UNK
     Route: 048
  2. TRAMADOL [Suspect]
     Active Substance: TRAMADOL\TRAMADOL HYDROCHLORIDE
  3. CAFFEINE [Suspect]
     Active Substance: CAFFEINE
  4. DIPHENHYDRAMINE [Suspect]
     Active Substance: DIPHENHYDRAMINE

REACTIONS (2)
  - Product use issue [Fatal]
  - Toxicity to various agents [Fatal]
